FAERS Safety Report 7642598-6 (Version None)
Quarter: 2011Q3

REPORT INFORMATION
  Report Type: 
  Country: None (occurrence: None)
  Receive Date: 20110728
  Receipt Date: 20110725
  Transmission Date: 20111222
  Serious: Yes (Hospitalization)
  Sender: FDA-Public Use
  Company Number: FR-PFIZER INC-2011167900

PATIENT
  Age: 53 Year
  Sex: Male

DRUGS (6)
  1. ATORVASTATIN CALCIUM [Suspect]
     Indication: DYSLIPIDAEMIA
     Dosage: 40 MG, 1X/DAY
     Route: 048
     Dates: start: 20110523, end: 20110528
  2. XANAX [Concomitant]
     Dosage: 0.25 MG, 1X/DAY
     Route: 048
     Dates: start: 20110520, end: 20110531
  3. PREDNISOLONE [Concomitant]
     Dosage: UNK
     Route: 048
     Dates: start: 20110514, end: 20110520
  4. TANGANIL [Concomitant]
     Dosage: UNK
     Dates: end: 20110531
  5. OMEPRAZOLE [Concomitant]
     Dosage: UNK
  6. ACETAMINOPHEN AND TRAMADOL HCL [Concomitant]
     Dosage: UNK
     Route: 048
     Dates: start: 20110514, end: 20110520

REACTIONS (1)
  - RASH GENERALISED [None]
